FAERS Safety Report 9591889 (Version 2)
Quarter: 2013Q4

REPORT INFORMATION
  Report Type: Spontaneous
  Country: US (occurrence: US)
  Receive Date: 20131004
  Receipt Date: 20131004
  Transmission Date: 20140711
  Serious: No
  Sender: FDA-Public Use
  Company Number: US-AMGEN-USASP2012076795

PATIENT
  Age: 25 Year
  Sex: Female
  Weight: 108.39 kg

DRUGS (5)
  1. ENBREL [Suspect]
     Indication: RHEUMATOID ARTHRITIS
     Dosage: 50 MG, QWK
     Route: 058
     Dates: start: 20120120, end: 20120312
  2. HUMIRA [Concomitant]
     Dosage: UNK
     Dates: start: 201206, end: 201209
  3. ZOLOFT [Concomitant]
     Indication: DEPRESSION
     Dosage: 20 MG, QD
  4. PERCOCET                           /00867901/ [Concomitant]
     Indication: PAIN
     Dosage: 5/325 UNK, QID
  5. RANITIDINE [Concomitant]
     Indication: REFLUX GASTRITIS
     Dosage: 150 MG, QD-BID

REACTIONS (10)
  - Oropharyngeal pain [Recovered/Resolved]
  - Pharyngeal oedema [Recovered/Resolved]
  - Dysphagia [Recovered/Resolved]
  - Local swelling [Recovered/Resolved]
  - Ear congestion [Recovered/Resolved]
  - Headache [Recovered/Resolved]
  - Tonsillar hypertrophy [Recovered/Resolved]
  - Sinusitis [Recovered/Resolved]
  - Injection site swelling [Recovered/Resolved]
  - Injection site erythema [Recovered/Resolved]
